FAERS Safety Report 10092292 (Version 1)
Quarter: 2014Q2

REPORT INFORMATION
  Report Type: Spontaneous
  Country: US (occurrence: US)
  Receive Date: 20140421
  Receipt Date: 20140421
  Transmission Date: 20141212
  Serious: No
  Sender: FDA-Public Use
  Company Number: US-SANOFI-AVENTIS-2013SA030634

PATIENT
  Sex: Female

DRUGS (2)
  1. ALLEGRA [Suspect]
     Indication: NASOPHARYNGITIS
     Route: 065
     Dates: start: 20130317, end: 20130317
  2. CIPROFLOXACIN [Concomitant]
     Indication: CYSTITIS

REACTIONS (1)
  - Drug ineffective [Unknown]
